FAERS Safety Report 19352809 (Version 1)
Quarter: 2021Q2

REPORT INFORMATION
  Report Type: Spontaneous
  Country: US (occurrence: US)
  Receive Date: 20210601
  Receipt Date: 20210601
  Transmission Date: 20210717
  Serious: Yes (Other)
  Sender: FDA-Public Use
  Company Number: US-REGENERON PHARMACEUTICALS, INC.-2021-54252

PATIENT

DRUGS (1)
  1. LIBTAYO [Suspect]
     Active Substance: CEMIPLIMAB-RWLC
     Indication: SQUAMOUS CELL CARCINOMA OF SKIN
     Dosage: UNK
     Dates: start: 20210506

REACTIONS (2)
  - Skin disorder [Not Recovered/Not Resolved]
  - Tumour exudation [Not Recovered/Not Resolved]

NARRATIVE: CASE EVENT DATE: 202105
